FAERS Safety Report 6939488-0 (Version None)
Quarter: 2010Q3

REPORT INFORMATION
  Report Type: 
  Country: None (occurrence: None)
  Receive Date: 20100820
  Receipt Date: 20100810
  Transmission Date: 20110219
  Serious: Yes (Hospitalization)
  Sender: FDA-Public Use
  Company Number: CTI_01218_2010

PATIENT
  Sex: Male

DRUGS (3)
  1. METACT (MEIACT MS (CEFDITOREN PIVOXIL) (NOT SPECIFIED) [Suspect]
     Indication: OROPHARYNGEAL PAIN
     Dosage: 300 MG ORAL
     Route: 048
     Dates: start: 20100426, end: 20100430
  2. METACT (MEIACT MS (CEFDITOREN PIVOXIL) (NOT SPECIFIED) [Suspect]
     Indication: PYREXIA
     Dosage: 300 MG ORAL
     Route: 048
     Dates: start: 20100426, end: 20100430
  3. LOXOPROFEN SODIUM [Concomitant]

REACTIONS (9)
  - ALANINE AMINOTRANSFERASE INCREASED [None]
  - ASPARTATE AMINOTRANSFERASE INCREASED [None]
  - BILE DUCT STONE [None]
  - BLOOD BILIRUBIN INCREASED [None]
  - CHOLANGITIS [None]
  - JAUNDICE [None]
  - LIVER DISORDER [None]
  - PHARYNGITIS [None]
  - PRURITUS [None]
